FAERS Safety Report 18477251 (Version 2)
Quarter: 2020Q4

REPORT INFORMATION
  Report Type: Spontaneous
  Country: JP (occurrence: JP)
  Receive Date: 20201107
  Receipt Date: 20201128
  Transmission Date: 20210114
  Serious: Yes (Death, Other)
  Sender: FDA-Public Use
  Company Number: JP-B.I. PHARMACEUTICALS,INC./RIDGEFIELD-2020-BI-059678

PATIENT
  Age: 81 Year
  Sex: Male

DRUGS (2)
  1. GILOTRIF [Suspect]
     Active Substance: AFATINIB
     Route: 048
     Dates: start: 20150223, end: 20191120
  2. GILOTRIF [Suspect]
     Active Substance: AFATINIB
     Indication: LUNG ADENOCARCINOMA
     Route: 048
     Dates: start: 20150112, end: 20150209

REACTIONS (4)
  - Metastases to lymph nodes [Unknown]
  - Stomatitis [Recovered/Resolved]
  - Pneumonia bacterial [Fatal]
  - Rash [Unknown]

NARRATIVE: CASE EVENT DATE: 20150209
